FAERS Safety Report 10174441 (Version 1)
Quarter: 2014Q2

REPORT INFORMATION
  Report Type: Spontaneous
  Country: US (occurrence: None)
  Receive Date: 20140514
  Receipt Date: 20140514
  Transmission Date: 20141212
  Serious: No
  Sender: FDA-Public Use
  Company Number: None

PATIENT
  Age: 51 Year
  Sex: Female

DRUGS (1)
  1. TECFIDERA [Suspect]
     Indication: MULTIPLE SCLEROSIS
     Route: 048
     Dates: start: 20140102, end: 20140505

REACTIONS (7)
  - Fall [None]
  - Gastroenteritis viral [None]
  - Drug intolerance [None]
  - Poisoning [None]
  - Nocturia [None]
  - Haemoglobin decreased [None]
  - White blood cell count decreased [None]
